FAERS Safety Report 15473185 (Version 1)
Quarter: 2018Q4

REPORT INFORMATION
  Report Type: Spontaneous
  Country: BR (occurrence: BR)
  Receive Date: 20181008
  Receipt Date: 20181008
  Transmission Date: 20190205
  Serious: Yes (Other)
  Sender: FDA-Public Use
  Company Number: BR-BAYER-2018-176854

PATIENT
  Sex: Female

DRUGS (2)
  1. NEBIDO [Suspect]
     Active Substance: TESTOSTERONE UNDECANOATE
  2. MIRENA [Suspect]
     Active Substance: LEVONORGESTREL
     Dosage: 20 MCG/24HR, CONT
     Route: 015
     Dates: start: 2017

REACTIONS (3)
  - Product use issue [None]
  - Drug abuse [None]
  - Drug interaction [None]
